FAERS Safety Report 24621131 (Version 15)
Quarter: 2025Q4

REPORT INFORMATION
  Report Type: Report from Study
  Country: CO (occurrence: CO)
  Receive Date: 20241114
  Receipt Date: 20251226
  Transmission Date: 20260118
  Serious: Yes (Hospitalization, Other)
  Sender: TAKEDA
  Company Number: CO-TAKEDA-2024TUS019962

PATIENT
  Age: 9 Year
  Sex: Female
  Weight: 22 kg

DRUGS (2)
  1. HUMAN IMMUNOGLOBULIN G\HYALURONIDASE RECOMBINANT HUMAN [Suspect]
     Active Substance: HUMAN IMMUNOGLOBULIN G\HYALURONIDASE (HUMAN RECOMBINANT)
     Indication: Primary immunodeficiency syndrome
     Dosage: 10 GRAM, MONTHLY
  2. HUMAN IMMUNOGLOBULIN G\HYALURONIDASE RECOMBINANT HUMAN [Suspect]
     Active Substance: HUMAN IMMUNOGLOBULIN G\HYALURONIDASE (HUMAN RECOMBINANT)
     Dosage: 10 GRAM, Q4WEEKS
     Dates: start: 20231128

REACTIONS (18)
  - Productive cough [Unknown]
  - Respiratory symptom [Unknown]
  - Pneumonia [Recovered/Resolved]
  - Influenza [Recovered/Resolved]
  - Inflammation [Unknown]
  - Oropharyngeal pain [Unknown]
  - Dyspnoea [Unknown]
  - Headache [Unknown]
  - Pyrexia [Unknown]
  - Intentional product use issue [Unknown]
  - Administration site extravasation [Unknown]
  - Product availability issue [Unknown]
  - Product dose omission issue [Unknown]
  - Weight increased [Unknown]
  - Body height increased [Unknown]
  - Product prescribing error [Unknown]
  - Incorrect dose administered [Unknown]
  - Weight decreased [Unknown]

NARRATIVE: CASE EVENT DATE: 20240227
